FAERS Safety Report 5285753-5 (Version None)
Quarter: 2007Q1

REPORT INFORMATION
  Report Type: 
  Country: None (occurrence: None)
  Receive Date: 20070126
  Receipt Date: 20061006
  Transmission Date: 20070707
  Serious: No
  Sender: FDA-Public Use
  Company Number: CLOF-10341

PATIENT
  Age: 15 Year
  Sex: Female
  Weight: 77.6 kg

DRUGS (8)
  1. CLOLAR [Suspect]
     Indication: MYELOID LEUKAEMIA
     Dosage: 74 MG QD X 5 IV
     Route: 042
     Dates: start: 20061004, end: 20061008
  2. CYTARABINE [Suspect]
     Indication: MYELOID LEUKAEMIA
     Dosage: 1.86 G QD X 5 IV
     Route: 042
     Dates: start: 20061003, end: 20061007
  3. BACTRIM [Concomitant]
  4. ZOFRAN [Concomitant]
  5. DEXAMETHASONE [Concomitant]
  6. ALLOPURINOL [Concomitant]
  7. TYLENOL [Concomitant]
  8. BENADRYL [Concomitant]

REACTIONS (1)
  - PAIN IN EXTREMITY [None]
